FAERS Safety Report 17945715 (Version 2)
Quarter: 2020Q3

REPORT INFORMATION
  Report Type: Spontaneous
  Country: CA (occurrence: CA)
  Receive Date: 20200625
  Receipt Date: 20200704
  Transmission Date: 20201103
  Serious: Yes (Death, Other)
  Sender: FDA-Public Use
  Company Number: CA-AMGEN-CANSP2020097988

PATIENT

DRUGS (2)
  1. IRON [Concomitant]
     Active Substance: IRON
     Dosage: UNK UNK, QWK
  2. ARANESP [Suspect]
     Active Substance: DARBEPOETIN ALFA
     Indication: NEPHROGENIC ANAEMIA
     Dosage: UNK UNK, QWK
     Route: 042
     Dates: start: 200303

REACTIONS (1)
  - Death [Fatal]
